FAERS Safety Report 20153322 (Version 6)
Quarter: 2022Q2

REPORT INFORMATION
  Report Type: Report from Study
  Country: FR (occurrence: FR)
  Receive Date: 20211206
  Receipt Date: 20220511
  Transmission Date: 20220720
  Serious: Yes (Life-Threatening, Hospitalization, Other)
  Sender: FDA-Public Use
  Company Number: FR-GILEAD-2021-0559114

PATIENT
  Age: 73 Year
  Sex: Male
  Weight: 76 kg

DRUGS (7)
  1. AXICABTAGENE CILOLEUCEL [Suspect]
     Active Substance: AXICABTAGENE CILOLEUCEL
     Indication: B-cell lymphoma
     Dosage: UNK
     Route: 065
     Dates: start: 20210906, end: 20210906
  2. FLUDARABINE [Concomitant]
     Active Substance: FLUDARABINE PHOSPHATE
     Indication: Bone marrow conditioning regimen
     Dosage: 166.5 MG, QD
     Dates: start: 20210901, end: 20210903
  3. CYCLOPHOSPHAMIDE [Concomitant]
     Active Substance: CYCLOPHOSPHAMIDE
     Indication: Bone marrow conditioning regimen
     Dosage: 2775 MG, QD
     Dates: start: 20210901, end: 20210903
  4. GEMCITABINE;OXALIPLATIN;RITUXIMAB [Concomitant]
     Indication: B-cell lymphoma
     Dosage: UNK
     Dates: start: 20210727, end: 20210727
  5. GEMCITABINE;OXALIPLATIN;RITUXIMAB [Concomitant]
     Dosage: UNK
     Dates: start: 20210811, end: 20210811
  6. ELIQUIS [Concomitant]
     Active Substance: APIXABAN
     Indication: Atrial flutter
     Dosage: 5 MG 1-0-1
  7. BISOPROLOL [Concomitant]
     Active Substance: BISOPROLOL
     Dosage: 2.5MG 1-0-0, 2.5MG: 1TAB MORNING

REACTIONS (3)
  - Disseminated intravascular coagulation [Recovered/Resolved]
  - Immune effector cell-associated neurotoxicity syndrome [Recovered/Resolved]
  - Ischaemic stroke [Recovered/Resolved]

NARRATIVE: CASE EVENT DATE: 20210913
